FAERS Safety Report 6237711-1 (Version None)
Quarter: 2009Q2

REPORT INFORMATION
  Report Type: 
  Country: None (occurrence: None)
  Receive Date: 20090610
  Receipt Date: 20090527
  Transmission Date: 20091009
  Serious: Yes (Hospitalization)
  Sender: FDA-Public Use
  Company Number: THYM-1001059

PATIENT
  Age: 28 Year
  Sex: Male

DRUGS (2)
  1. THYMOGLOBULIN [Suspect]
     Indication: APLASTIC ANAEMIA
     Dosage: 3.75 MG/KG,INTRAVENOUS
     Route: 042
     Dates: start: 20090519
  2. PREDNICOLONE (PREDNISOLONE ACETATE) [Concomitant]

REACTIONS (1)
  - URTICARIA [None]
